FAERS Safety Report 4845218-9 (Version None)
Quarter: 2005Q4

REPORT INFORMATION
  Report Type: 
  Country: None (occurrence: None)
  Receive Date: 20051205
  Receipt Date: 20050906
  Transmission Date: 20060501
  Serious: No
  Sender: FDA-Public Use
  Company Number: US-AVENTIS-200516634US

PATIENT
  Sex: Female
  Weight: 55 kg

DRUGS (8)
  1. KETEK [Suspect]
     Indication: SIALOADENITIS
     Route: 048
     Dates: start: 20050827, end: 20050831
  2. CYTOMEL [Concomitant]
     Dosage: DOSE: UNK
  3. TUMS [Concomitant]
     Dosage: DOSE: UNK
  4. CALCITRIOL [Concomitant]
     Dosage: DOSE: UNK
  5. LOPRESSOR [Concomitant]
     Dosage: DOSE: UNK
  6. ASPIRIN [Concomitant]
     Dosage: DOSE: UNK
  7. FOSAMAX [Concomitant]
     Dosage: DOSE: UNK
  8. SYNTHROID [Concomitant]

REACTIONS (2)
  - DIZZINESS [None]
  - TONGUE DISCOLOURATION [None]
